FAERS Safety Report 5467157-5 (Version None)
Quarter: 2007Q3

REPORT INFORMATION
  Report Type: 
  Country: None (occurrence: None)
  Receive Date: 20070921
  Receipt Date: 20070921
  Transmission Date: 20080115
  Serious: Yes (Other)
  Sender: FDA-Public Use
  Company Number: None

PATIENT
  Age: 40 Year
  Sex: Female

DRUGS (1)
  1. PROCRIT [Suspect]
     Indication: ANAEMIA
     Dosage: 40,000 UNITS/ML EVERY WEEK SQ
     Route: 058
     Dates: start: 20070725, end: 20070913

REACTIONS (2)
  - BLISTER [None]
  - RASH GENERALISED [None]
